FAERS Safety Report 15279417 (Version 2)
Quarter: 2020Q2

REPORT INFORMATION
  Report Type: Spontaneous
  Country: None (occurrence: CZ)
  Receive Date: 20180815
  Receipt Date: 20200622
  Transmission Date: 20200713
  Serious: Yes (Other)
  Sender: FDA-Public Use
  Company Number: CZ-ORION CORPORATION ORION PHARMA-TREX2018-2403

PATIENT
  Age: 55 Year
  Sex: Male

DRUGS (5)
  1. FOLIC ACID. [Concomitant]
     Active Substance: FOLIC ACID
     Route: 065
  2. PREDNISONE. [Suspect]
     Active Substance: PREDNISONE
     Indication: SARCOIDOSIS
     Dosage: SUBSEQUENT DOSE DECREASE UP TO 5 MG EVERY 14 DAYS.
     Route: 048
     Dates: start: 201505
  3. METHOTREXATE. [Suspect]
     Active Substance: METHOTREXATE
     Indication: SARCOIDOSIS
     Route: 048
  4. METHOTREXATE. [Suspect]
     Active Substance: METHOTREXATE
     Route: 058
     Dates: start: 201505, end: 201506
  5. PREDNISONE. [Suspect]
     Active Substance: PREDNISONE
     Route: 048
     Dates: start: 201505

REACTIONS (6)
  - Product use in unapproved indication [Unknown]
  - Polyneuropathy [Unknown]
  - Chest X-ray abnormal [Unknown]
  - Sarcoidosis [Unknown]
  - Cataract [Unknown]
  - Steroid diabetes [Unknown]
